FAERS Safety Report 7825346 (Version 2)
Quarter: 2016Q4

REPORT INFORMATION
  Report Type: Report from Study
  Country: US (occurrence: US)
  Receive Date: 20110224
  Receipt Date: 20161104
  Transmission Date: 20170207
  Serious: Yes (Death)
  Sender: FDA-Public Use
  Company Number: US-ROCHE-761468

PATIENT

DRUGS (4)
  1. PROPARACAINE [Concomitant]
     Active Substance: PROPARACAINE
     Dosage: BEFORE BEVACIZUMAB
     Route: 065
  2. BEVACIZUMAB [Suspect]
     Active Substance: BEVACIZUMAB
     Indication: RETINOPATHY OF PREMATURITY
     Route: 050
  3. POVIDONE-IODINE. [Concomitant]
     Active Substance: POVIDONE-IODINE
     Dosage: BEFORE BEVACIZUMAB
     Route: 065
  4. POVIDONE-IODINE. [Concomitant]
     Active Substance: POVIDONE-IODINE
     Dosage: AFTER BEVACIZUMAB
     Route: 065

REACTIONS (2)
  - Off label use [Fatal]
  - Multiple organ dysfunction syndrome [Fatal]
